FAERS Safety Report 21739853 (Version 3)
Quarter: 2023Q1

REPORT INFORMATION
  Report Type: Spontaneous
  Country: JP (occurrence: JP)
  Receive Date: 20221216
  Receipt Date: 20230227
  Transmission Date: 20230418
  Serious: Yes (Hospitalization, Other)
  Sender: FDA-Public Use
  Company Number: JP-GLAXOSMITHKLINE-JP2022JPN186004

PATIENT

DRUGS (10)
  1. ANORO ELLIPTA [Suspect]
     Active Substance: UMECLIDINIUM BROMIDE\VILANTEROL TRIFENATATE
     Dosage: 1 DF, 1D
     Route: 055
  2. LEVOTHYROXINE SODIUM [Suspect]
     Active Substance: LEVOTHYROXINE SODIUM
     Indication: Hypothyroidism
     Dosage: 50 ?G, 1D
     Route: 048
     Dates: end: 20210601
  3. FUROSEMIDE [Suspect]
     Active Substance: FUROSEMIDE
     Dosage: 20 MG, 1D
     Route: 048
     Dates: end: 20210601
  4. TAMSULOSIN HYDROCHLORIDE [Suspect]
     Active Substance: TAMSULOSIN HYDROCHLORIDE
     Indication: Dysuria
     Dosage: 0.2 MG, 1D
     Route: 048
     Dates: end: 20210601
  5. OLMESARTAN MEDOXOMIL [Suspect]
     Active Substance: OLMESARTAN MEDOXOMIL
     Indication: Hypertension
     Dosage: 10 MG, 1D
     Route: 048
     Dates: end: 20210601
  6. MIRABEGRON [Suspect]
     Active Substance: MIRABEGRON
     Indication: Dysuria
     Dosage: 50 MG, 1D
     Route: 048
     Dates: end: 20210601
  7. VONOPRAZAN FUMARATE [Suspect]
     Active Substance: VONOPRAZAN FUMARATE
     Dosage: 20 MG, 1D
  8. MOSAPRIDE CITRATE [Suspect]
     Active Substance: MOSAPRIDE CITRATE
     Dosage: 10 MG, 1D
  9. BETAHISTINE MESILATE [Suspect]
     Active Substance: BETAHISTINE MESILATE
     Dosage: 12 MG, 1D
  10. ZOLPIDEM TARTRATE [Suspect]
     Active Substance: ZOLPIDEM TARTRATE
     Dosage: 10 MG, 1D

REACTIONS (18)
  - Wernicke^s encephalopathy [Recovered/Resolved]
  - Dizziness [Recovering/Resolving]
  - Vomiting [Recovering/Resolving]
  - Vision blurred [Recovering/Resolving]
  - Immobile [Recovering/Resolving]
  - Depressed level of consciousness [Recovered/Resolved]
  - Ophthalmoplegia [Recovering/Resolving]
  - Nystagmus [Recovering/Resolving]
  - Dysstasia [Recovering/Resolving]
  - Ataxia [Recovering/Resolving]
  - Hyperthyroidism [Recovering/Resolving]
  - Vitamin B1 deficiency [Recovering/Resolving]
  - Vitamin B12 deficiency [Recovering/Resolving]
  - Oedema peripheral [Recovering/Resolving]
  - Anaemia [Recovering/Resolving]
  - Hypoferritinaemia [Recovering/Resolving]
  - Iron deficiency [Recovered/Resolved]
  - Blood thyroid stimulating hormone decreased [Recovering/Resolving]

NARRATIVE: CASE EVENT DATE: 20210530
